FAERS Safety Report 12399711 (Version 1)
Quarter: 2016Q2

REPORT INFORMATION
  Report Type: Report from Study
  Country: VE (occurrence: VE)
  Receive Date: 20160524
  Receipt Date: 20160524
  Transmission Date: 20160815
  Serious: Yes (Death, Hospitalization, Other)
  Sender: FDA-Public Use
  Company Number: VE-ABBVIE-13P-178-1111057-00

PATIENT
  Sex: Female
  Weight: 46 kg

DRUGS (1)
  1. HUMIRA [Suspect]
     Active Substance: ADALIMUMAB
     Indication: RHEUMATOID ARTHRITIS
     Route: 058
     Dates: start: 20100312, end: 201105

REACTIONS (5)
  - Thrombosis [Fatal]
  - Systemic lupus erythematosus [Unknown]
  - Rheumatoid arthritis [Fatal]
  - Cardio-respiratory arrest [Fatal]
  - Brain death [Fatal]

NARRATIVE: CASE EVENT DATE: 2011
